FAERS Safety Report 17802218 (Version 1)
Quarter: 2020Q2

REPORT INFORMATION
  Report Type: Spontaneous
  Country: US (occurrence: US)
  Receive Date: 20200518
  Receipt Date: 20200518
  Transmission Date: 20200714
  Serious: No
  Sender: FDA-Public Use
  Company Number: None

PATIENT
  Age: 39 Year
  Sex: Female

DRUGS (2)
  1. ZUBSOLV [Concomitant]
     Active Substance: BUPRENORPHINE HYDROCHLORIDE\NALOXONE HYDROCHLORIDE
     Dates: start: 20200501, end: 20200518
  2. MAVYRET [Suspect]
     Active Substance: GLECAPREVIR\PIBRENTASVIR
     Indication: HEPATITIS C
     Dosage: OTHER DOSE:100MG-40MG;?
     Route: 048
     Dates: start: 20200415

REACTIONS (2)
  - Palpitations [None]
  - Anxiety [None]

NARRATIVE: CASE EVENT DATE: 20200517
